FAERS Safety Report 7280078-0 (Version None)
Quarter: 2011Q1

REPORT INFORMATION
  Report Type: 
  Country: None (occurrence: None)
  Receive Date: 20110208
  Receipt Date: 20110119
  Transmission Date: 20110831
  Serious: No
  Sender: FDA-Public Use
  Company Number: US-B.I. PHARMACEUTICALS,INC./RIDGEFIELD-2011-BP-02031BP

PATIENT
  Sex: Female

DRUGS (8)
  1. CITRACAL [Concomitant]
     Indication: PROPHYLAXIS
     Route: 048
  2. SYNTHROID [Concomitant]
     Indication: HYPOTHYROIDISM
     Route: 048
  3. PANTOPRAZOLE [Concomitant]
     Indication: GASTRIC PH DECREASED
     Route: 048
  4. PRADAXA [Suspect]
     Indication: ATRIAL FIBRILLATION
     Dosage: 300 MG
     Route: 048
     Dates: start: 20110112
  5. CALCIUM [Concomitant]
     Indication: PROPHYLAXIS
     Dosage: 1200 MG
     Route: 048
  6. METOPROLOL TARTRATE [Concomitant]
     Indication: HYPERTENSION
     Dosage: 100 MG
     Route: 048
  7. AMLODIPINE [Concomitant]
     Indication: HYPERTENSION
     Dosage: 10 MG
     Route: 048
  8. VITAMIN D [Concomitant]
     Indication: PROPHYLAXIS
     Route: 048

REACTIONS (2)
  - PALPITATIONS [None]
  - JOINT SWELLING [None]
